FAERS Safety Report 21305872 (Version 2)
Quarter: 2023Q1

REPORT INFORMATION
  Report Type: Report from Study
  Country: CA (occurrence: CA)
  Receive Date: 20220908
  Receipt Date: 20230227
  Transmission Date: 20230418
  Serious: Yes (Other)
  Sender: FDA-Public Use
  Company Number: CA-JNJFOC-20220912254

PATIENT
  Sex: Female
  Weight: 69 kg

DRUGS (1)
  1. STELARA [Suspect]
     Active Substance: USTEKINUMAB
     Indication: Crohn^s disease
     Dosage: EXPIRY DATE: AUG-2025. PATIENT RECEIVED INJECTION ON 22-FEB-2023
     Route: 058

REACTIONS (3)
  - Vitamin B12 deficiency [Not Recovered/Not Resolved]
  - Intestinal resection [Unknown]
  - Post procedural inflammation [Unknown]
